FAERS Safety Report 7223366-6 (Version None)
Quarter: 2011Q1

REPORT INFORMATION
  Report Type: 
  Country: None (occurrence: None)
  Receive Date: 20110112
  Receipt Date: 20100519
  Transmission Date: 20110831
  Serious: No
  Sender: FDA-Public Use
  Company Number: US-ALLERGAN-1006585US

PATIENT
  Sex: Female

DRUGS (4)
  1. TIMOLOL MALEATE [Concomitant]
     Dosage: 1 GTT, BID
     Route: 047
  2. TRAVATAN [Concomitant]
     Indication: GLAUCOMA
     Dosage: 1 GTT, QHS
     Route: 047
  3. OPTIVE [Concomitant]
  4. RESTASIS [Suspect]
     Indication: DRY EYE
     Dosage: 1 GTT, BID
     Route: 047
     Dates: start: 20100512

REACTIONS (1)
  - VISION BLURRED [None]
